FAERS Safety Report 7852730-7 (Version None)
Quarter: 2011Q4

REPORT INFORMATION
  Report Type: 
  Country: None (occurrence: None)
  Receive Date: 20111026
  Receipt Date: 20111017
  Transmission Date: 20120403
  Serious: Yes (Other)
  Sender: FDA-Public Use
  Company Number: US-ASTRAZENECA-2011SE62428

PATIENT
  Age: 88 Year
  Sex: Female

DRUGS (7)
  1. ASPIRIN [Concomitant]
  2. PRAVASTATIN [Suspect]
  3. METOPROLOL TARTRATE [Concomitant]
  4. ALENDRONATE SODIUM [Concomitant]
  5. ANASTROZOLE [Suspect]
     Indication: BREAST CANCER
     Dosage: DAILY
     Route: 048
  6. CLOPIDOGREL [Concomitant]
  7. ENALAPRIL MALEATE [Concomitant]

REACTIONS (1)
  - LIVER INJURY [None]
